FAERS Safety Report 6616404-2 (Version None)
Quarter: 2010Q1

REPORT INFORMATION
  Report Type: 
  Country: None (occurrence: None)
  Receive Date: 20100305
  Receipt Date: 20100222
  Transmission Date: 20100710
  Serious: Yes (Disabling, Other)
  Sender: FDA-Public Use
  Company Number: PHEH2010US00456

PATIENT
  Sex: Female
  Weight: 45 kg

DRUGS (5)
  1. RECLAST [Suspect]
     Indication: OSTEOPOROSIS
     Dosage: 5 MG IV ONCE YEARLY
     Route: 042
     Dates: start: 20090310
  2. ORENCIA [Concomitant]
     Dosage: 500MG Q4 WEEKS
  3. LOTREL [Concomitant]
     Dosage: 5/10 MG QD
     Route: 048
  4. METHOTREXATE [Concomitant]
     Indication: RHEUMATOID ARTHRITIS
     Dosage: 17.5 MG, QW
     Route: 048
  5. METHADONE [Concomitant]

REACTIONS (2)
  - COGNITIVE DISORDER [None]
  - CONFUSIONAL STATE [None]
